FAERS Safety Report 10190802 (Version 4)
Quarter: 2015Q1

REPORT INFORMATION
  Report Type: Report from Study
  Country: BR (occurrence: BR)
  Receive Date: 20140523
  Receipt Date: 20150302
  Transmission Date: 20150720
  Serious: Yes (Hospitalization, Other)
  Sender: FDA-Public Use
  Company Number: PHHY2014BR060059

PATIENT
  Sex: Female
  Weight: 63 kg

DRUGS (5)
  1. HYDREA [Suspect]
     Active Substance: HYDROXYUREA
     Indication: SICKLE CELL ANAEMIA
     Dosage: 3 DF, QD
     Route: 048
     Dates: start: 2010
  2. MULTIVITAMIN AND MINERAL SUPPLEMENT [Concomitant]
     Active Substance: MINERALS\VITAMINS
     Indication: PRODUCT USED FOR UNKNOWN INDICATION
     Dosage: 1 DF, QD
     Route: 048
  3. EXJADE [Suspect]
     Active Substance: DEFERASIROX
     Indication: SICKLE CELL ANAEMIA
     Dosage: 4 DF, QD
     Route: 048
  4. HYDREA [Suspect]
     Active Substance: HYDROXYUREA
     Dosage: 3 DF, QD
     Route: 048
  5. FOLIC ACID. [Concomitant]
     Active Substance: FOLIC ACID
     Indication: SICKLE CELL ANAEMIA
     Dosage: 1 DF, DAILY
     Route: 048

REACTIONS (2)
  - Blood pressure increased [Recovered/Resolved]
  - Maternal exposure during pregnancy [Unknown]
